FAERS Safety Report 12123341 (Version 1)
Quarter: 2016Q1

REPORT INFORMATION
  Report Type: Spontaneous
  Country: US (occurrence: None)
  Receive Date: 20160226
  Receipt Date: 20160226
  Transmission Date: 20160526
  Serious: No
  Sender: FDA-Public Use
  Company Number: None

PATIENT
  Age: 46 Year
  Sex: Male

DRUGS (1)
  1. ALECENSA [Suspect]
     Active Substance: ALECTINIB HYDROCHLORIDE
     Indication: DRUG THERAPY
     Dosage: 150MG  4 CAP BID WITH FOOD
     Route: 048
     Dates: start: 20151216

REACTIONS (3)
  - Peripheral swelling [None]
  - Joint swelling [None]
  - Eyelid oedema [None]

NARRATIVE: CASE EVENT DATE: 20160115
